FAERS Safety Report 5470685-X (Version None)
Quarter: 2007Q3

REPORT INFORMATION
  Report Type: 
  Country: None (occurrence: None)
  Receive Date: 20070928
  Receipt Date: 20070913
  Transmission Date: 20080115
  Serious: Yes (Other)
  Sender: FDA-Public Use
  Company Number: US-AMGEN-US243140

PATIENT
  Sex: Female

DRUGS (2)
  1. ARANESP [Suspect]
     Indication: DRUG USE FOR UNKNOWN INDICATION
     Route: 058
     Dates: start: 20070801, end: 20070901
  2. VITAMIN B-12 [Concomitant]
     Route: 051

REACTIONS (4)
  - ARTHROPOD STING [None]
  - LOCALISED INFECTION [None]
  - OEDEMA PERIPHERAL [None]
  - PAIN IN EXTREMITY [None]
